FAERS Safety Report 5826071-3 (Version None)
Quarter: 2008Q3

REPORT INFORMATION
  Report Type: 
  Country: None (occurrence: None)
  Receive Date: 20080729
  Receipt Date: 20080722
  Transmission Date: 20090109
  Serious: Yes (Hospitalization)
  Sender: FDA-Public Use
  Company Number: PHHY2008FR14127

PATIENT
  Sex: Female
  Weight: 60 kg

DRUGS (5)
  1. VOLTAREN [Suspect]
     Indication: BACK PAIN
     Dosage: 1 DF, BID
     Route: 030
     Dates: start: 20080601, end: 20080703
  2. CHRONADALATE [Concomitant]
  3. VADILEX [Concomitant]
  4. CACIT [Concomitant]
  5. EURELIX [Concomitant]

REACTIONS (3)
  - ERYTHEMA INDURATUM [None]
  - INJECTION SITE IRRITATION [None]
  - PAIN [None]
